FAERS Safety Report 6526168-9 (Version None)
Quarter: 2010Q1

REPORT INFORMATION
  Report Type: 
  Country: None (occurrence: None)
  Receive Date: 20100104
  Receipt Date: 20070810
  Transmission Date: 20100710
  Serious: Yes (Other)
  Sender: FDA-Public Use
  Company Number: US-GENENTECH-242478

PATIENT
  Sex: Male

DRUGS (5)
  1. LUCENTIS [Suspect]
     Indication: MACULAR DEGENERATION
     Dates: start: 20061201
  2. NEURONTIN [Concomitant]
     Indication: DRUG USE FOR UNKNOWN INDICATION
  3. XALATAN [Concomitant]
     Indication: DRUG USE FOR UNKNOWN INDICATION
  4. PRILOSEC [Concomitant]
     Indication: DRUG USE FOR UNKNOWN INDICATION
  5. ZOCOR [Concomitant]
     Indication: DRUG USE FOR UNKNOWN INDICATION

REACTIONS (3)
  - CORNEAL OPACITY [None]
  - METAMORPHOPSIA [None]
  - VISUAL ACUITY REDUCED [None]
